FAERS Safety Report 18600419 (Version 1)
Quarter: 2020Q4

REPORT INFORMATION
  Report Type: Spontaneous
  Country: AT (occurrence: AT)
  Receive Date: 20201210
  Receipt Date: 20201210
  Transmission Date: 20210114
  Serious: Yes (Death)
  Sender: FDA-Public Use
  Company Number: AT-PFIZER INC-2020484733

PATIENT
  Age: 56 Year
  Sex: Male

DRUGS (12)
  1. CARBOPLATIN. [Suspect]
     Active Substance: CARBOPLATIN
     Indication: NON-HODGKIN^S LYMPHOMA
     Dosage: UNK (R-ICE)
     Route: 065
  2. POLATUZUMAB VEDOTIN. [Suspect]
     Active Substance: POLATUZUMAB VEDOTIN
     Indication: NON-HODGKIN^S LYMPHOMA
     Dosage: UNK (POLA-R-BENDA)
     Route: 065
  3. DOXORUBICIN HCL [Suspect]
     Active Substance: DOXORUBICIN HYDROCHLORIDE
     Indication: NON-HODGKIN^S LYMPHOMA
     Dosage: UNK (R-CHOP )
     Route: 065
  4. BENDAMUSTINE [Suspect]
     Active Substance: BENDAMUSTINE
     Indication: NON-HODGKIN^S LYMPHOMA
     Dosage: UNK (POLA-R-BENDA)
     Route: 065
  5. RITUXIMAB. [Suspect]
     Active Substance: RITUXIMAB
     Indication: NON-HODGKIN^S LYMPHOMA
     Dosage: UNK (R-CHOP )
     Route: 041
  6. CYCLOPHOSPHAMIDE. [Suspect]
     Active Substance: CYCLOPHOSPHAMIDE
     Indication: NON-HODGKIN^S LYMPHOMA
     Dosage: UNK (R-CHOP )
     Route: 065
  7. IFOSFAMIDE. [Suspect]
     Active Substance: IFOSFAMIDE
     Indication: NON-HODGKIN^S LYMPHOMA
     Dosage: UNK (R-ICE)
     Route: 065
  8. ETOPOSIDE. [Suspect]
     Active Substance: ETOPOSIDE
     Indication: NON-HODGKIN^S LYMPHOMA
     Dosage: UNK (R-ICE)
     Route: 065
  9. PREDNISOLONE. [Suspect]
     Active Substance: PREDNISOLONE
     Indication: NON-HODGKIN^S LYMPHOMA
     Dosage: UNK (R-CHOP )
     Route: 065
  10. OBINUTUZUMAB. [Suspect]
     Active Substance: OBINUTUZUMAB
     Indication: NON-HODGKIN^S LYMPHOMA
     Dosage: UNK (R-ICE)
     Route: 042
  11. VINCRISTINE SULFATE. [Suspect]
     Active Substance: VINCRISTINE SULFATE
     Indication: NON-HODGKIN^S LYMPHOMA
     Dosage: UNK (R-CHOP )
     Route: 065
  12. POLIVY [Suspect]
     Active Substance: POLATUZUMAB VEDOTIN-PIIQ
     Indication: NON-HODGKIN^S LYMPHOMA
     Dosage: UNK (POLA-R-BENDA)
     Route: 065

REACTIONS (1)
  - Death [Fatal]
